FAERS Safety Report 8016914-X (Version None)
Quarter: 2012Q1

REPORT INFORMATION
  Report Type: 
  Country: None (occurrence: None)
  Receive Date: 20120102
  Receipt Date: 20111222
  Transmission Date: 20120608
  Serious: Yes (Other)
  Sender: FDA-Public Use
  Company Number: PHEH2011US012332

PATIENT
  Sex: Female

DRUGS (1)
  1. NEORAL [Suspect]
     Indication: RENAL TRANSPLANT

REACTIONS (5)
  - VOMITING [None]
  - MENTAL DISORDER [None]
  - AMMONIA INCREASED [None]
  - ANURIA [None]
  - RENAL DISORDER [None]
